FAERS Safety Report 6428524-6 (Version None)
Quarter: 2009Q4

REPORT INFORMATION
  Report Type: 
  Country: None (occurrence: None)
  Receive Date: 20091105
  Receipt Date: 20091028
  Transmission Date: 20100525
  Serious: Yes (Life-Threatening, Hospitalization, Disabling, Other)
  Sender: FDA-Public Use
  Company Number: JP-AVENTIS-200912730JP

PATIENT
  Age: 85 Year
  Sex: Female
  Weight: 50 kg

DRUGS (9)
  1. AMARYL [Suspect]
     Indication: DIABETES MELLITUS
     Route: 048
     Dates: end: 20090930
  2. LUDIOMIL                           /00331902/ [Suspect]
     Indication: DEPRESSION
     Route: 048
     Dates: start: 20090930, end: 20090930
  3. LOSARTAN POTASSIUM AND HYDROCHLOROTHIAZIDE [Concomitant]
     Indication: HYPERTENSION
     Dosage: DOSE: 1 TABLET
     Route: 048
     Dates: end: 20090930
  4. TENORMIN [Concomitant]
     Indication: HYPERTENSION
     Route: 048
     Dates: end: 20090930
  5. MEVALOTIN [Concomitant]
     Route: 048
     Dates: end: 20090930
  6. SEPAMIT [Concomitant]
     Route: 048
     Dates: end: 20090930
  7. LASIX [Concomitant]
     Route: 048
     Dates: end: 20090930
  8. ALDACTONE [Concomitant]
     Route: 048
     Dates: end: 20090930
  9. CLARITIN [Concomitant]
     Route: 048
     Dates: end: 20090930

REACTIONS (2)
  - DRUG INTERACTION [None]
  - HYPOGLYCAEMIC ENCEPHALOPATHY [None]
